FAERS Safety Report 25577416 (Version 1)
Quarter: 2025Q3

REPORT INFORMATION
  Report Type: Spontaneous
  Country: US (occurrence: US)
  Receive Date: 20250718
  Receipt Date: 20250718
  Transmission Date: 20251020
  Serious: No
  Sender: VERTEX
  Company Number: US-VERTEX PHARMACEUTICALS-2025-011524

PATIENT

DRUGS (1)
  1. SUZETRIGINE [Suspect]
     Active Substance: SUZETRIGINE
     Indication: Product used for unknown indication
     Route: 048
     Dates: start: 20250514, end: 20250514

REACTIONS (3)
  - Flushing [Unknown]
  - Swollen tongue [Unknown]
  - Tongue disorder [Unknown]

NARRATIVE: CASE EVENT DATE: 20250501
